FAERS Safety Report 7230419-5 (Version None)
Quarter: 2011Q1

REPORT INFORMATION
  Report Type: 
  Country: None (occurrence: None)
  Receive Date: 20110118
  Receipt Date: 20110113
  Transmission Date: 20110831
  Serious: Yes (Death, Other)
  Sender: FDA-Public Use
  Company Number: JP-PFIZER INC-2010157502

PATIENT
  Age: 44 Year
  Sex: Female
  Weight: 39.7 kg

DRUGS (9)
  1. ASTOMIN [Concomitant]
     Dosage: 10 MG, 3X/DAY
     Dates: start: 20100329, end: 20100419
  2. URSO 250 [Concomitant]
     Dosage: 50 MG, 3X/DAY
     Dates: start: 20100413, end: 20100419
  3. NAUZELIN [Concomitant]
     Indication: NAUSEA
     Dosage: 10 MG, AS NEEDED
     Dates: start: 20100414, end: 20100418
  4. MUCODYNE [Concomitant]
     Dosage: 500 MG, 3X/DAY
     Dates: start: 20100329, end: 20100419
  5. RHYTHMY [Concomitant]
     Indication: INSOMNIA
     Dosage: 1 MG, AS NEEDED
     Dates: start: 20100330, end: 20100403
  6. SUTENT [Suspect]
     Indication: RENAL CELL CARCINOMA
     Dosage: 37.5 MG, 1X/DAY
     Route: 048
     Dates: start: 20100407, end: 20100415
  7. PURSENNID [Concomitant]
     Indication: CONSTIPATION
     Dosage: 12 MG, AS NEEDED
     Dates: start: 20100330, end: 20100403
  8. CALONAL [Concomitant]
     Dosage: 200 MG, AS NEEDED
     Dates: start: 20100330, end: 20100403
  9. CODEINE PHOSPHATE [Concomitant]
     Dosage: UNK
     Dates: start: 20100302, end: 20100419

REACTIONS (11)
  - HEPATIC FUNCTION ABNORMAL [None]
  - PLATELET COUNT DECREASED [None]
  - TUMOUR LYSIS SYNDROME [None]
  - HYPOCALCAEMIA [None]
  - BRADYCARDIA [None]
  - RENAL FAILURE [None]
  - CARDIO-RESPIRATORY ARREST [None]
  - HYPERKALAEMIA [None]
  - MULTI-ORGAN FAILURE [None]
  - ACIDOSIS [None]
  - DECREASED APPETITE [None]
